FAERS Safety Report 8455765-9 (Version None)
Quarter: 2012Q2

REPORT INFORMATION
  Report Type: 
  Country: None (occurrence: None)
  Receive Date: 20120621
  Receipt Date: 20120619
  Transmission Date: 20120825
  Serious: No
  Sender: FDA-Public Use
  Company Number: US-PFIZER INC-2012147762

PATIENT
  Sex: Female
  Weight: 81.633 kg

DRUGS (6)
  1. LYRICA [Suspect]
     Dosage: 500 MG, FIVE TIMES IN A DAY
     Route: 048
     Dates: start: 20120101, end: 20120101
  2. LIPITOR [Concomitant]
     Indication: BLOOD CHOLESTEROL INCREASED
     Dosage: 20 MG, DAILY
     Route: 048
  3. LYRICA [Suspect]
     Dosage: 500 MG, 2X/DAY
     Route: 048
     Dates: start: 20120101, end: 20120101
  4. LYRICA [Suspect]
     Indication: BACK PAIN
     Dosage: 150 MG, 3X/DAY
     Route: 048
     Dates: start: 20120301, end: 20120101
  5. LYRICA [Suspect]
     Dosage: 500 MG, 3X/DAY
     Route: 048
     Dates: start: 20120101, end: 20120101
  6. LYRICA [Suspect]
     Dosage: 500 MG, 4X/DAY
     Route: 048
     Dates: start: 20120101, end: 20120101

REACTIONS (2)
  - WEIGHT INCREASED [None]
  - WEIGHT DECREASED [None]
